FAERS Safety Report 22395574 (Version 1)
Quarter: 2023Q2

REPORT INFORMATION
  Report Type: Spontaneous
  Country: FR (occurrence: FR)
  Receive Date: 20230601
  Receipt Date: 20230601
  Transmission Date: 20230722
  Serious: Yes (Other)
  Sender: FDA-Public Use
  Company Number: None

PATIENT
  Age: 35 Year
  Sex: Female
  Weight: 57 kg

DRUGS (17)
  1. KEYTRUDA [Suspect]
     Active Substance: PEMBROLIZUMAB
     Indication: Triple negative breast cancer
     Dosage: 200 MILLIGRAM, ONCE
     Route: 042
     Dates: start: 20230131, end: 20230131
  2. KEYTRUDA [Suspect]
     Active Substance: PEMBROLIZUMAB
     Dosage: 200 MILLIGRAM, ONCE
     Route: 042
     Dates: start: 20230314, end: 20230314
  3. KEYTRUDA [Suspect]
     Active Substance: PEMBROLIZUMAB
     Dosage: 200 MILLIGRAM, ONCE
     Route: 042
     Dates: start: 20230221, end: 20230221
  4. PACLITAXEL [Suspect]
     Active Substance: PACLITAXEL
     Indication: Triple negative breast cancer
     Dosage: 134.5 MILLIGRAM, ONCE
     Route: 042
     Dates: start: 20230214, end: 20230214
  5. PACLITAXEL [Suspect]
     Active Substance: PACLITAXEL
     Dosage: 134.5 MILLIGRAM, ONCE
     Route: 042
     Dates: start: 20230131, end: 20230131
  6. PACLITAXEL [Suspect]
     Active Substance: PACLITAXEL
     Dosage: 133 MILLIGRAM, ONCE
     Route: 042
     Dates: start: 20230314, end: 20230314
  7. PACLITAXEL [Suspect]
     Active Substance: PACLITAXEL
     Dosage: 134.5 MILLIGRAM, ONCE
     Route: 042
     Dates: start: 20230207, end: 20230207
  8. PACLITAXEL [Suspect]
     Active Substance: PACLITAXEL
     Dosage: 133 MILLIGRAM, ONCE
     Route: 042
     Dates: start: 20230221, end: 20230221
  9. PACLITAXEL [Suspect]
     Active Substance: PACLITAXEL
     Dosage: 133 MILLIGRAM, ONCE
     Route: 042
     Dates: start: 20230307, end: 20230307
  10. PACLITAXEL [Suspect]
     Active Substance: PACLITAXEL
     Dosage: 133 MILLIGRAM, ONCE
     Route: 042
     Dates: start: 20230228, end: 20230228
  11. CARBOPLATIN [Suspect]
     Active Substance: CARBOPLATIN
     Indication: Triple negative breast cancer
     Dosage: 212.5 MILLIGRAM, ONCE
     Route: 042
     Dates: start: 20230214, end: 20230214
  12. CARBOPLATIN [Suspect]
     Active Substance: CARBOPLATIN
     Dosage: 205 MILLIGRAM, ONCE
     Route: 042
     Dates: start: 20230314, end: 20230314
  13. CARBOPLATIN [Suspect]
     Active Substance: CARBOPLATIN
     Dosage: 196.5 MILLIGRAM, ONCE
     Route: 042
     Dates: start: 20230307, end: 20230307
  14. CARBOPLATIN [Suspect]
     Active Substance: CARBOPLATIN
     Dosage: 189 MILLIGRAM, ONCE
     Route: 042
     Dates: start: 20230207, end: 20230207
  15. CARBOPLATIN [Suspect]
     Active Substance: CARBOPLATIN
     Dosage: 212 MILLIGRAM, ONCE
     Route: 042
     Dates: start: 20230221, end: 20230221
  16. CARBOPLATIN [Suspect]
     Active Substance: CARBOPLATIN
     Dosage: 189 MILLIGRAM, ONCE
     Route: 042
     Dates: start: 20230131, end: 20230131
  17. CARBOPLATIN [Suspect]
     Active Substance: CARBOPLATIN
     Dosage: 196.5 MILLIGRAM, ONCE
     Route: 042
     Dates: start: 20230228, end: 20230228

REACTIONS (2)
  - Mucosal inflammation [Recovered/Resolved]
  - Neutropenia [Recovered/Resolved]

NARRATIVE: CASE EVENT DATE: 20230314
